FAERS Safety Report 4391461-5 (Version None)
Quarter: 2004Q3

REPORT INFORMATION
  Report Type: 
  Country: None (occurrence: None)
  Receive Date: 20040707
  Receipt Date: 20040624
  Transmission Date: 20050211
  Serious: Yes (Life-Threatening)
  Sender: FDA-Public Use
  Company Number: 371073

PATIENT
  Age: 95 Year
  Sex: Male

DRUGS (3)
  1. KREDEX [Suspect]
     Indication: DRUG USE FOR UNKNOWN INDICATION
     Dosage: 1U PER DAY
     Route: 048
     Dates: start: 20040215, end: 20040324
  2. LASIX [Concomitant]
     Dates: start: 20040201
  3. HEMIGOXINE NATIVELLE [Concomitant]
     Dates: start: 20040201

REACTIONS (2)
  - EPILEPSY [None]
  - HYPOGLYCAEMIA [None]
